FAERS Safety Report 17614602 (Version 1)
Quarter: 2020Q2

REPORT INFORMATION
  Report Type: Spontaneous
  Country: JP (occurrence: JP)
  Receive Date: 20200402
  Receipt Date: 20200402
  Transmission Date: 20200713
  Serious: Yes (Other)
  Sender: FDA-Public Use
  Company Number: JP-GLAXOSMITHKLINE-JP2020055358

PATIENT
  Sex: Female

DRUGS (1)
  1. RELVAR ELLIPTA [Suspect]
     Active Substance: FLUTICASONE FUROATE\VILANTEROL TRIFENATATE
     Indication: ASTHMA
     Dosage: 200 ?G, QD,BEFORE BREAKFAST
     Route: 055
     Dates: start: 201910

REACTIONS (8)
  - Dysphonia [Unknown]
  - Headache [Unknown]
  - Epistaxis [Unknown]
  - Nasal dryness [Unknown]
  - Oropharyngeal pain [Unknown]
  - Nasopharyngitis [Unknown]
  - Angina pectoris [Unknown]
  - Oral discomfort [Unknown]

NARRATIVE: CASE EVENT DATE: 201912
